FAERS Safety Report 8263090-4 (Version None)
Quarter: 2012Q2

REPORT INFORMATION
  Report Type: 
  Country: None (occurrence: None)
  Receive Date: 20120405
  Receipt Date: 20120326
  Transmission Date: 20120825
  Serious: Yes (Other)
  Sender: FDA-Public Use
  Company Number: NL-TEVA-330473ISR

PATIENT
  Age: 24 Year
  Sex: Male

DRUGS (1)
  1. CLINDAMYCIN [Suspect]
     Indication: FOLLICULITIS
     Dosage: HE WAS PRESCRIBED 3 X 300MG TABLETS
     Route: 048

REACTIONS (1)
  - OESOPHAGEAL ULCER [None]
